FAERS Safety Report 5257608-3 (Version None)
Quarter: 2007Q1

REPORT INFORMATION
  Report Type: 
  Country: None (occurrence: None)
  Receive Date: 20070307
  Receipt Date: 20070126
  Transmission Date: 20070707
  Serious: No
  Sender: FDA-Public Use
  Company Number: US-GLAXOSMITHKLINE-A0633910A

PATIENT
  Age: 49 Year
  Sex: Female
  Weight: 75.5 kg

DRUGS (2)
  1. REQUIP [Suspect]
     Indication: RESTLESS LEGS SYNDROME
     Route: 048
     Dates: start: 20060601, end: 20061204
  2. ASPIRIN [Concomitant]
     Indication: PROPHYLAXIS
     Dosage: 81MG UNKNOWN
     Route: 048
     Dates: start: 20050101

REACTIONS (5)
  - BRONCHITIS CHRONIC [None]
  - NOCTURNAL DYSPNOEA [None]
  - PRODUCTIVE COUGH [None]
  - SINUSITIS [None]
  - WHEEZING [None]
